FAERS Safety Report 5408730-X (Version None)
Quarter: 2007Q3

REPORT INFORMATION
  Report Type: 
  Country: None (occurrence: None)
  Receive Date: 20070808
  Receipt Date: 20070807
  Transmission Date: 20080115
  Serious: Yes (Hospitalization)
  Sender: FDA-Public Use
  Company Number: B0476925A

PATIENT
  Age: 83 Year
  Sex: Female
  Weight: 68 kg

DRUGS (9)
  1. ARIXTRA [Suspect]
     Dosage: 7.5MG PER DAY
     Dates: start: 20070319, end: 20070402
  2. CORTANCYL [Concomitant]
     Route: 048
  3. DUPHALAC [Concomitant]
  4. AMLODIPINE [Concomitant]
     Route: 048
  5. NEXIUM [Concomitant]
  6. CRESTOR [Concomitant]
     Route: 048
  7. IMOVANE [Concomitant]
  8. LASIX [Concomitant]
  9. COLCHIMAX [Concomitant]

REACTIONS (4)
  - DYSPNOEA [None]
  - FALL [None]
  - PAIN [None]
  - TRAUMATIC HAEMATOMA [None]
